FAERS Safety Report 4592663-5 (Version None)
Quarter: 2005Q1

REPORT INFORMATION
  Report Type: 
  Country: None (occurrence: None)
  Receive Date: 20050222
  Receipt Date: 20050214
  Transmission Date: 20050727
  Serious: Yes (Disabling)
  Sender: FDA-Public Use
  Company Number: 2005-0002-EUR

PATIENT

DRUGS (1)
  1. CITANEST (PRILOCAINE HYDROCHLORIDE) (INJECTION)  (PRILOCAINE) [Suspect]
     Indication: DENTAL OPERATION

REACTIONS (1)
  - BLINDNESS UNILATERAL [None]
